FAERS Safety Report 6401064-6 (Version None)
Quarter: 2009Q4

REPORT INFORMATION
  Report Type: 
  Country: None (occurrence: None)
  Receive Date: 20091015
  Receipt Date: 20090922
  Transmission Date: 20100525
  Serious: No
  Sender: FDA-Public Use
  Company Number: US-BAYER-200932955NA

PATIENT
  Age: 72 Year
  Sex: Female

DRUGS (2)
  1. BETAPACE [Suspect]
     Indication: ATRIAL FIBRILLATION
  2. RYTHMOL [Suspect]
     Indication: ATRIAL FIBRILLATION

REACTIONS (1)
  - ATRIAL FIBRILLATION [None]
